FAERS Safety Report 15449676 (Version 6)
Quarter: 2019Q3

REPORT INFORMATION
  Report Type: Report from Study
  Country: AR (occurrence: AR)
  Receive Date: 20181001
  Receipt Date: 20190826
  Transmission Date: 20191004
  Serious: Yes (Other)
  Sender: FDA-Public Use
  Company Number: AR-ACTELION-A-CH2018-179336

PATIENT
  Age: 62 Year
  Sex: Female

DRUGS (1)
  1. OPSUMIT [Suspect]
     Active Substance: MACITENTAN
     Indication: PULMONARY ARTERIAL HYPERTENSION
     Dosage: 10 MG, QD
     Route: 048
     Dates: start: 20110103

REACTIONS (12)
  - Choking [Recovering/Resolving]
  - Angina pectoris [Unknown]
  - Feeling abnormal [Unknown]
  - Malaise [Unknown]
  - Cardiac disorder [Recovering/Resolving]
  - Viral infection [Recovering/Resolving]
  - Renal disorder [Recovering/Resolving]
  - Bronchitis [Unknown]
  - Hypotension [Unknown]
  - Condition aggravated [Unknown]
  - Pharyngitis [Recovering/Resolving]
  - Oxygen saturation decreased [Unknown]

NARRATIVE: CASE EVENT DATE: 20180914
